FAERS Safety Report 19742858 (Version 2)
Quarter: 2021Q3

REPORT INFORMATION
  Report Type: Report from Study
  Country: US (occurrence: US)
  Receive Date: 20210825
  Receipt Date: 20210930
  Transmission Date: 20211014
  Serious: Yes (Other)
  Sender: FDA-Public Use
  Company Number: US-JAZZ-2021-US-014548

PATIENT
  Sex: Female

DRUGS (4)
  1. XYREM [Suspect]
     Active Substance: SODIUM OXYBATE
     Indication: NARCOLEPSY
     Dosage: 2.25 GRAM, BID
     Route: 048
     Dates: start: 201909, end: 201909
  2. XYREM [Suspect]
     Active Substance: SODIUM OXYBATE
     Dosage: 3 GRAM, BID
     Route: 048
     Dates: start: 201909, end: 201909
  3. LOSARTAN AND HYDROCHLOROTHIAZIDE [Suspect]
     Active Substance: HYDROCHLOROTHIAZIDE\LOSARTAN POTASSIUM
     Indication: HYPERTENSION
     Dosage: DOSE REDUCED
  4. XYREM [Suspect]
     Active Substance: SODIUM OXYBATE
     Dosage: 3.75 GRAM, BID
     Route: 048
     Dates: start: 201909

REACTIONS (11)
  - Joint swelling [Unknown]
  - Acute kidney injury [Unknown]
  - Meibomian gland dysfunction [Unknown]
  - Dehydration [Unknown]
  - Gastrointestinal infection [Unknown]
  - Peripheral swelling [Unknown]
  - Antinuclear antibody increased [Recovering/Resolving]
  - Infection [Unknown]
  - COVID-19 [Unknown]
  - Blood pressure decreased [Unknown]
  - Anxiety [Unknown]

NARRATIVE: CASE EVENT DATE: 2020
